FAERS Safety Report 7568378-8 (Version None)
Quarter: 2011Q2

REPORT INFORMATION
  Report Type: 
  Country: None (occurrence: None)
  Receive Date: 20110623
  Receipt Date: 20110614
  Transmission Date: 20111010
  Serious: Yes (Hospitalization)
  Sender: FDA-Public Use
  Company Number: B0720186A

PATIENT
  Sex: Male

DRUGS (5)
  1. LAMICTAL [Suspect]
     Indication: EPILEPSY
     Dosage: 225MG PER DAY
     Route: 048
     Dates: start: 20110416, end: 20110509
  2. DEPAKENE [Concomitant]
     Dosage: 600MG PER DAY
     Route: 048
     Dates: start: 20080101, end: 20110509
  3. DEPAKENE [Concomitant]
     Dosage: 800MG PER DAY
     Route: 048
     Dates: start: 20110518
  4. DEPAKENE [Concomitant]
     Indication: EPILEPSY
     Route: 048
     Dates: start: 20040101
  5. DEPAKENE [Concomitant]
     Dosage: 400MG PER DAY
     Route: 048

REACTIONS (1)
  - DRUG RASH WITH EOSINOPHILIA AND SYSTEMIC SYMPTOMS [None]
